FAERS Safety Report 8272613 (Version 5)
Quarter: 2013Q2

REPORT INFORMATION
  Report Type: Spontaneous
  Country: US (occurrence: US)
  Receive Date: 20111202
  Receipt Date: 20130610
  Transmission Date: 20140414
  Serious: Yes (Death, Hospitalization)
  Sender: FDA-Public Use
  Company Number: US-B.I. PHARMACEUTICALS,INC./RIDGEFIELD-2011-BP-27137BP

PATIENT
  Age: 70 Year
  Sex: Male
  Weight: 90.72 kg

DRUGS (10)
  1. PRADAXA [Suspect]
     Indication: ATRIAL FIBRILLATION
     Dosage: 300 MG
     Route: 048
     Dates: start: 20111025, end: 20111124
  2. PRADAXA [Suspect]
     Indication: ANTICOAGULANT THERAPY
  3. ASPIRIN [Concomitant]
     Indication: PROPHYLAXIS
     Dosage: 81 MG
     Route: 048
  4. TOPROL XL [Concomitant]
     Dosage: 50 MG
  5. POTASSIUM CHLORIDE [Concomitant]
     Dosage: 20 MG
  6. FUROSEMIDE [Concomitant]
     Dosage: 40 MG
  7. COLCHICINE [Concomitant]
     Route: 048
  8. AMIODARONE [Concomitant]
     Dosage: 800 MG
  9. ALLOPURINOL [Concomitant]
     Dosage: 100 MG
  10. ACETAMINOPHEN PLUS HYDROCODONE [Concomitant]

REACTIONS (1)
  - Cerebral haemorrhage [Fatal]
